FAERS Safety Report 24877191 (Version 3)
Quarter: 2025Q1

REPORT INFORMATION
  Report Type: Report from Study
  Country: US (occurrence: US)
  Receive Date: 20250123
  Receipt Date: 20250319
  Transmission Date: 20250409
  Serious: Yes (Hospitalization)
  Sender: INSMED
  Company Number: US-INSMED-2023-04739-USAA

PATIENT
  Sex: Female

DRUGS (1)
  1. ARIKAYCE [Suspect]
     Active Substance: AMIKACIN
     Indication: Mycobacterial infection
     Dosage: 590 MILLIGRAM, QOD
     Route: 055
     Dates: start: 202202

REACTIONS (4)
  - Hospitalisation [Unknown]
  - Sepsis [Unknown]
  - Pneumonia [Unknown]
  - Off label use [Unknown]
